FAERS Safety Report 4371236-3 (Version None)
Quarter: 2004Q2

REPORT INFORMATION
  Report Type: 
  Country: None (occurrence: None)
  Receive Date: 20040604
  Receipt Date: 20040511
  Transmission Date: 20050107
  Serious: Yes (Hospitalization, Other)
  Sender: FDA-Public Use
  Company Number: DE-BRISTOL-MYERS SQUIBB COMPANY-12584660

PATIENT
  Age: 63 Year
  Sex: Female
  Weight: 63 kg

DRUGS (2)
  1. CARBOPLATIN [Suspect]
     Indication: NEOPLASM MALIGNANT
     Dosage: 1ST DOSE- 11-DEC-03
     Route: 042
     Dates: start: 20040401, end: 20040401
  2. CAELYX [Suspect]
     Indication: NEOPLASM MALIGNANT
     Dosage: 1ST DOSE ON 11-DEC-03
     Route: 042
     Dates: start: 20040401, end: 20040401

REACTIONS (2)
  - ANAEMIA [None]
  - VERTIGO [None]
